FAERS Safety Report 4774086-9 (Version None)
Quarter: 2005Q3

REPORT INFORMATION
  Report Type: 
  Country: None (occurrence: None)
  Receive Date: 20050919
  Receipt Date: 20050905
  Transmission Date: 20060218
  Serious: Yes (Other)
  Sender: FDA-Public Use
  Company Number: 167-20785-05090138

PATIENT
  Sex: Male

DRUGS (1)
  1. THALIDOMIDE - PHARMION (THALIDOMIDE) (CAPSULES [Suspect]
     Dosage: 100 MG, ORAL
     Route: 048
     Dates: start: 20050801

REACTIONS (5)
  - CONSTIPATION [None]
  - PRURITUS [None]
  - RASH [None]
  - SOMNOLENCE [None]
  - ULCER [None]
